FAERS Safety Report 5040411-7 (Version None)
Quarter: 2006Q2

REPORT INFORMATION
  Report Type: 
  Country: None (occurrence: None)
  Receive Date: 20060630
  Receipt Date: 20060609
  Transmission Date: 20061013
  Serious: Yes (Other)
  Sender: FDA-Public Use
  Company Number: US-GLAXOSMITHKLINE-B0427138A

PATIENT
  Age: 39 Year
  Sex: Female

DRUGS (2)
  1. GW679769 [Suspect]
     Indication: PROPHYLAXIS OF NAUSEA AND VOMITING
     Dosage: 30MG PER DAY
     Route: 042
     Dates: start: 20060517, end: 20060517
  2. ONDANSETRON HCL [Suspect]
     Indication: PROPHYLAXIS OF NAUSEA AND VOMITING
     Dosage: 4MG PER DAY
     Route: 042
     Dates: start: 20060517, end: 20060517

REACTIONS (2)
  - NAUSEA [None]
  - VOMITING [None]
